FAERS Safety Report 10762702 (Version 2)
Quarter: 2016Q1

REPORT INFORMATION
  Report Type: Other
  Country: US (occurrence: US)
  Receive Date: 20150204
  Receipt Date: 20160217
  Transmission Date: 20160525
  Serious: Yes (Disabling)
  Sender: FDA-Public Use
  Company Number: US-ACORDA-ACO_102613_2014

PATIENT
  Age: 40 Year
  Sex: Male

DRUGS (2)
  1. AMANTADINE [Suspect]
     Active Substance: AMANTADINE
     Indication: PRODUCT USED FOR UNKNOWN INDICATION
     Dosage: UNK
     Dates: start: 20150519, end: 20150523
  2. AMPYRA [Suspect]
     Active Substance: DALFAMPRIDINE
     Indication: PRODUCT USED FOR UNKNOWN INDICATION
     Dosage: 10 MG, BID
     Route: 048
     Dates: start: 201401, end: 20140320

REACTIONS (10)
  - Malaise [Not Recovered/Not Resolved]
  - Gait disturbance [Not Recovered/Not Resolved]
  - Pain in extremity [Not Recovered/Not Resolved]
  - Balance disorder [Not Recovered/Not Resolved]
  - Fatigue [Unknown]
  - Paraesthesia [Unknown]
  - Abasia [Unknown]
  - Asthenia [Not Recovered/Not Resolved]
  - Pain [Unknown]
  - Depression [Unknown]

NARRATIVE: CASE EVENT DATE: 201403
